FAERS Safety Report 20902909 (Version 1)
Quarter: 2022Q2

REPORT INFORMATION
  Report Type: Spontaneous
  Country: IN (occurrence: IN)
  Receive Date: 20220601
  Receipt Date: 20220601
  Transmission Date: 20220720
  Serious: Yes (Hospitalization)
  Sender: FDA-Public Use
  Company Number: IN-PFIZER INC-2020003652

PATIENT
  Age: 66 Year
  Sex: Male
  Weight: 80.3 kg

DRUGS (7)
  1. SUTENT [Suspect]
     Active Substance: SUNITINIB MALATE
     Indication: Metastatic renal cell carcinoma
     Dosage: 50 MG, CYCLIC (ONCE DAILY, 2 WEEKS ON AND 1 WEEK OFF)
     Route: 048
     Dates: start: 20190801
  2. SUTENT [Suspect]
     Active Substance: SUNITINIB MALATE
     Dosage: 50 MG, CYCLIC (OD X 4WK +/B 2WK OFF)
     Route: 048
  3. SUTENT [Suspect]
     Active Substance: SUNITINIB MALATE
     Dosage: 50 MG, CYCLIC (ONCE A DAY FOR 2 WEEKS FOLLOWED BY 1 WEEK OFF)
     Route: 048
     Dates: start: 20210414
  4. SUTENT [Suspect]
     Active Substance: SUNITINIB MALATE
     Dosage: 50 MG CYCLIC (ONCE DAILY FOR 4 WEEKS FOLLOWED BY 1 WEEK OFF )
     Route: 048
  5. NEUKINE [Concomitant]
     Dosage: 300 UG
     Dates: start: 20200320
  6. DARBEPOETIN ALFA [Concomitant]
     Active Substance: DARBEPOETIN ALFA
     Dosage: 100 UG
     Dates: start: 20200401
  7. LEVOTHYROXINE [Concomitant]
     Active Substance: LEVOTHYROXINE
     Dosage: 75 UG, 1X/DAY

REACTIONS (28)
  - Acute kidney injury [Unknown]
  - Urinary tract obstruction [Unknown]
  - Blood glucose abnormal [Unknown]
  - Phimosis [Unknown]
  - Cardiomegaly [Unknown]
  - Pleural effusion [Unknown]
  - Lung opacity [Unknown]
  - Hepatic steatosis [Unknown]
  - Prostatomegaly [Unknown]
  - Body temperature decreased [Unknown]
  - Pain [Unknown]
  - Fatigue [Unknown]
  - Blood creatinine increased [Unknown]
  - Creatinine renal clearance decreased [Unknown]
  - Iron binding capacity total decreased [Unknown]
  - Red blood cell count decreased [Unknown]
  - Haematocrit decreased [Unknown]
  - Haemoglobin decreased [Unknown]
  - Mean cell haemoglobin concentration decreased [Unknown]
  - Basophil count increased [Unknown]
  - Mean cell haemoglobin decreased [Unknown]
  - Nasopharyngitis [Unknown]
  - Pyrexia [Unknown]
  - Malaise [Unknown]
  - Neoplasm progression [Unknown]
  - Blister [Unknown]
  - Feeling hot [Unknown]
  - Haemodialysis [Unknown]

NARRATIVE: CASE EVENT DATE: 20200929
